FAERS Safety Report 10777020 (Version 14)
Quarter: 2016Q3

REPORT INFORMATION
  Report Type: Report from Study
  Country: CA (occurrence: CA)
  Receive Date: 20150209
  Receipt Date: 20160728
  Transmission Date: 20161109
  Serious: Yes (Hospitalization)
  Sender: FDA-Public Use
  Company Number: PHHY2014CA164833

PATIENT
  Age: 53 Year
  Sex: Male

DRUGS (2)
  1. SANDOSTATIN LAR DEPOT [Suspect]
     Active Substance: OCTREOTIDE ACETATE
     Indication: METASTATIC CARCINOID TUMOUR
     Dosage: 20 MG, QMO (EVERY 4 WEEKS)
     Route: 030
     Dates: start: 20141114, end: 20160526
  2. SANDOSTATIN [Suspect]
     Active Substance: OCTREOTIDE ACETATE
     Indication: METASTATIC CARCINOID TUMOUR
     Dosage: 150 UG, TID
     Route: 058
     Dates: start: 20141101, end: 20141205

REACTIONS (17)
  - Blood pressure systolic increased [Unknown]
  - Oedema [Unknown]
  - Nausea [Unknown]
  - Carcinoid heart disease [Unknown]
  - Anxiety [Unknown]
  - Fatigue [Unknown]
  - Fluid retention [Unknown]
  - Chest pain [Unknown]
  - Metastases to liver [Recovering/Resolving]
  - Stress [Unknown]
  - Pruritus [Unknown]
  - Incision site infection [Unknown]
  - Gastrointestinal neoplasm [Recovered/Resolved]
  - Pyrexia [Unknown]
  - Oedema peripheral [Unknown]
  - Dyspnoea [Unknown]
  - Malaise [Unknown]

NARRATIVE: CASE EVENT DATE: 2014
